FAERS Safety Report 8861418 (Version 1)
Quarter: 2012Q4

REPORT INFORMATION
  Report Type: 
  Country: US (occurrence: US)
  Receive Date: 20121025
  Receipt Date: 20121025
  Transmission Date: 20130627
  Serious: No
  Sender: FDA-Public Use
  Company Number: US-AMGEN-USASP2012013226

PATIENT
  Age: 52 Year
  Sex: Male
  Weight: 95.24 kg

DRUGS (8)
  1. ENBREL [Suspect]
     Indication: PSORIATIC ARTHROPATHY
     Dosage: 50 mg, 2 times/wk
     Dates: start: 2008
  2. ASA [Concomitant]
  3. METHYLPREDISOLONE [Concomitant]
  4. FISH OIL [Concomitant]
  5. NORVASC [Concomitant]
  6. FOLIC ACID [Concomitant]
  7. GLUCOSAMINE + CHONDROITIN [Concomitant]
  8. METHOTREXATE [Concomitant]

REACTIONS (1)
  - Injection site bruising [Unknown]
